FAERS Safety Report 15158278 (Version 2)
Quarter: 2018Q3

REPORT INFORMATION
  Report Type: Spontaneous
  Country: US (occurrence: US)
  Receive Date: 20180718
  Receipt Date: 20180806
  Transmission Date: 20181010
  Serious: No
  Sender: FDA-Public Use
  Company Number: US-BAYER-2018-133514

PATIENT
  Sex: Female

DRUGS (2)
  1. MIRENA [Suspect]
     Active Substance: LEVONORGESTREL
     Indication: NEOPLASM PROPHYLAXIS
     Dosage: 20 MCG/24HR, CONT
     Route: 015
     Dates: start: 201806
  2. MIRENA [Suspect]
     Active Substance: LEVONORGESTREL
     Indication: UTERINE ENLARGEMENT
     Dosage: 20 MCG/24HR, CONT
     Route: 015

REACTIONS (7)
  - Dyspareunia [None]
  - Device use issue [None]
  - Off label use of device [None]
  - Device use issue [None]
  - Off label use of device [None]
  - Medical device discomfort [None]
  - Medical device discomfort [None]

NARRATIVE: CASE EVENT DATE: 2018
